FAERS Safety Report 8573658-3 (Version None)
Quarter: 2012Q3

REPORT INFORMATION
  Report Type: 
  Country: None (occurrence: None)
  Receive Date: 20120806
  Receipt Date: 20120730
  Transmission Date: 20120928
  Serious: Yes (Other)
  Sender: FDA-Public Use
  Company Number: US-BAYER-2012-078232

PATIENT
  Age: 77 Year
  Sex: Male
  Weight: 81.65 kg

DRUGS (7)
  1. OMEPRAZOLE [Concomitant]
     Indication: GASTRIC DISORDER
     Route: 048
  2. LASIX [Concomitant]
     Dosage: 40 MG, QD
     Route: 048
  3. XARELTO [Interacting]
     Indication: ATRIAL FIBRILLATION
     Dosage: 20 MG, QD
     Route: 048
     Dates: start: 20120501
  4. ASPIRIN [Suspect]
     Indication: ATRIAL FIBRILLATION
     Dosage: 81 MG, QD
     Route: 048
  5. XARELTO [Interacting]
     Indication: CEREBROVASCULAR ACCIDENT PROPHYLAXIS
  6. CARVEDILOL [Concomitant]
     Indication: CARDIAC DISORDER
     Route: 048
     Dates: start: 19850101
  7. CAPTOPRIL [Concomitant]
     Indication: CARDIAC DISORDER
     Dosage: 50 MG, BID
     Route: 048

REACTIONS (14)
  - BLOOD GLUCOSE INCREASED [None]
  - RECTAL HAEMORRHAGE [None]
  - FLATULENCE [None]
  - STRESS [None]
  - ABDOMINAL DISTENSION [None]
  - RADIATION PROSTATITIS [None]
  - POLYP [None]
  - BLOOD ALBUMIN DECREASED [None]
  - HAEMORRHOIDAL HAEMORRHAGE [None]
  - LETHARGY [None]
  - ANAEMIA [None]
  - INCREASED TENDENCY TO BRUISE [None]
  - DIZZINESS [None]
  - APPETITE DISORDER [None]
